FAERS Safety Report 4463685-X (Version None)
Quarter: 2004Q3

REPORT INFORMATION
  Report Type: 
  Country: None (occurrence: None)
  Receive Date: 20040929
  Receipt Date: 20040913
  Transmission Date: 20050211
  Serious: Yes (Other)
  Sender: FDA-Public Use
  Company Number: 2004234194GB

PATIENT
  Age: 67 Year
  Sex: Male
  Weight: 71.5 kg

DRUGS (4)
  1. CELEBREX [Suspect]
     Indication: ARTHRALGIA
     Dosage: BID, PRN, ORAL
     Route: 048
     Dates: start: 20020419, end: 20020428
  2. EUMOVATE (CLOBETASONE BUTYRATE) [Concomitant]
  3. IBUPROFEN [Concomitant]
  4. CO-CODAMOL [Concomitant]

REACTIONS (4)
  - IDIOPATHIC THROMBOCYTOPENIC PURPURA [None]
  - LETHARGY [None]
  - MALAISE [None]
  - VIRAL INFECTION [None]
